FAERS Safety Report 7048852-3 (Version None)
Quarter: 2010Q4

REPORT INFORMATION
  Report Type: 
  Country: None (occurrence: None)
  Receive Date: 20101018
  Receipt Date: 20101007
  Transmission Date: 20110411
  Serious: Yes (Hospitalization, Disabling)
  Sender: FDA-Public Use
  Company Number: FR-ASTRAZENECA-2010SE47651

PATIENT
  Age: 73 Year
  Sex: Female
  Weight: 67 kg

DRUGS (4)
  1. MOPRAL [Suspect]
     Route: 048
     Dates: end: 20100901
  2. DISULONE [Suspect]
     Indication: PEMPHIGOID
     Route: 048
     Dates: start: 20060301
  3. TAHOR [Suspect]
     Route: 048
     Dates: start: 20100101, end: 20100916
  4. FLUVOXAMINE [Concomitant]
     Route: 048

REACTIONS (1)
  - NEUROPATHY PERIPHERAL [None]
